FAERS Safety Report 7677315-7 (Version None)
Quarter: 2011Q3

REPORT INFORMATION
  Report Type: 
  Country: None (occurrence: None)
  Receive Date: 20110808
  Receipt Date: 20110728
  Transmission Date: 20111222
  Serious: Yes (Hospitalization)
  Sender: FDA-Public Use
  Company Number: 2009JP007484

PATIENT
  Age: 57 Year
  Sex: Female
  Weight: 48 kg

DRUGS (8)
  1. TACROLIMUS [Suspect]
     Indication: LUPUS NEPHRITIS
     Dosage: 2 MG, UNKNOWN/D, ORAL; 2.5 MG, UNKNOWN/D, ORAL
     Route: 048
     Dates: start: 20070724, end: 20100510
  2. TACROLIMUS [Suspect]
     Indication: LUPUS NEPHRITIS
     Dosage: 2 MG, UNKNOWN/D, ORAL; 2.5 MG, UNKNOWN/D, ORAL
     Route: 048
     Dates: start: 20100511
  3. LOSARTAN POTASSIUM [Concomitant]
  4. PREDNISOLONE [Concomitant]
  5. COMELIAN (DILAZEP DIHYDROCHLORIDE) [Concomitant]
  6. AMLODIPINE BESYLATE [Concomitant]
  7. GASTER (FAMOTIDINE) ORODISPERSIBLE CR [Concomitant]
  8. FOSAMAX [Concomitant]

REACTIONS (4)
  - ESCHERICHIA INFECTION [None]
  - NEPHROLITHIASIS [None]
  - CYSTITIS [None]
  - PYELONEPHRITIS ACUTE [None]
